FAERS Safety Report 6323556-0 (Version None)
Quarter: 2009Q3

REPORT INFORMATION
  Report Type: 
  Country: None (occurrence: None)
  Receive Date: 20090824
  Receipt Date: 20090611
  Transmission Date: 20100115
  Serious: No
  Sender: FDA-Public Use
  Company Number: US-ABBOTT-09P-163-0579363-00

PATIENT
  Sex: Female

DRUGS (2)
  1. NIASPAN [Suspect]
     Indication: DRUG USE FOR UNKNOWN INDICATION
     Dosage: ONE PILL EVERY NIGHT
  2. BLOOD PRESSURE PILL [Concomitant]
     Indication: BLOOD PRESSURE
     Dosage: 1/2 PILL

REACTIONS (1)
  - HYPOTENSION [None]
